FAERS Safety Report 17217403 (Version 1)
Quarter: 2019Q4

REPORT INFORMATION
  Report Type: Spontaneous
  Country: FR (occurrence: FR)
  Receive Date: 20191231
  Receipt Date: 20191231
  Transmission Date: 20200122
  Serious: Yes (Hospitalization)
  Sender: FDA-Public Use
  Company Number: FR-ZYDUS-045068

PATIENT
  Age: 52 Year
  Sex: Male
  Weight: 94 kg

DRUGS (3)
  1. HYDROCHLOROTHIAZIDE/LOSARTAN POTASSIUM [Suspect]
     Active Substance: HYDROCHLOROTHIAZIDE\LOSARTAN POTASSIUM
     Indication: INTENTIONAL OVERDOSE
     Dosage: IN TOTAL
     Route: 048
     Dates: start: 20191201, end: 20191201
  2. ATROPA BELLADONNA EXTRACT/CAFFEINE/PAPAVER SOMNIFERUM TINCTURE/PARACETAMOL [Suspect]
     Active Substance: ACETAMINOPHEN\BELLADONNA LEAF\CAFFEINE\OPIUM
     Indication: INTENTIONAL OVERDOSE
     Dosage: IN TOTAL
     Route: 048
     Dates: start: 20191201, end: 20191201
  3. TRAMADOL. [Suspect]
     Active Substance: TRAMADOL
     Indication: INTENTIONAL OVERDOSE
     Dosage: IN TOTAL
     Route: 048
     Dates: start: 20191201, end: 20191201

REACTIONS (3)
  - Acute kidney injury [Recovering/Resolving]
  - Hypotension [Recovered/Resolved]
  - Intentional overdose [Recovered/Resolved]

NARRATIVE: CASE EVENT DATE: 20191201
